FAERS Safety Report 7764324-2 (Version None)
Quarter: 2011Q3

REPORT INFORMATION
  Report Type: 
  Country: None (occurrence: None)
  Receive Date: 20110921
  Receipt Date: 20110915
  Transmission Date: 20111222
  Serious: No
  Sender: FDA-Public Use
  Company Number: US-BAYER-2011-087336

PATIENT
  Age: 80 Year
  Sex: Male
  Weight: 107 kg

DRUGS (6)
  1. XANAX [Concomitant]
  2. PAXIL [Concomitant]
  3. ALEVE [Suspect]
     Indication: ANALGESIC THERAPY
     Dosage: 2 DF, 4 TIMES A DAY
     Route: 048
  4. ZANTAC [Concomitant]
  5. MEVACOR [Concomitant]
  6. CARDURA [Concomitant]

REACTIONS (1)
  - PAIN [None]
